FAERS Safety Report 10663604 (Version 1)
Quarter: 2014Q4

REPORT INFORMATION
  Report Type: Report from Study
  Country: US (occurrence: US)
  Receive Date: 20141219
  Receipt Date: 20141219
  Transmission Date: 20150529
  Serious: Yes (Other)
  Sender: FDA-Public Use
  Company Number: US-AMGEN-USASL2014096871

PATIENT
  Age: 38 Year
  Sex: Female

DRUGS (1)
  1. ENBREL [Suspect]
     Active Substance: ETANERCEPT
     Indication: ANKYLOSING SPONDYLITIS
     Dosage: 25 MG, 2 TIMES/WK
     Route: 065

REACTIONS (7)
  - Bone scan abnormal [Unknown]
  - Foot fracture [Unknown]
  - Joint swelling [Unknown]
  - Joint crepitation [Unknown]
  - Pelvic fracture [Unknown]
  - Joint instability [Unknown]
  - Joint lock [Unknown]
